FAERS Safety Report 5022000-3 (Version None)
Quarter: 2006Q2

REPORT INFORMATION
  Report Type: 
  Country: None (occurrence: None)
  Receive Date: 20060501
  Receipt Date: 20060113
  Transmission Date: 20061013
  Serious: Yes (Hospitalization)
  Sender: FDA-Public Use
  Company Number: 200610503US

PATIENT
  Age: 60 Year
  Sex: Female

DRUGS (2)
  1. KETEK [Suspect]
     Indication: PNEUMONIA
     Dosage: 800 MG QD PO
     Route: 048
     Dates: start: 20060109, end: 20060109
  2. LEXAPRO [Concomitant]

REACTIONS (1)
  - RESPIRATORY ARREST [None]
